FAERS Safety Report 4531013-7 (Version None)
Quarter: 2004Q4

REPORT INFORMATION
  Report Type: 
  Country: None (occurrence: None)
  Receive Date: 20041217
  Receipt Date: 20041208
  Transmission Date: 20050328
  Serious: Yes (Hospitalization)
  Sender: FDA-Public Use
  Company Number: NO-MERCK-0412NOR00019

PATIENT
  Age: 77 Year
  Sex: Female

DRUGS (5)
  1. VIOXX [Suspect]
     Indication: ARTHRALGIA
     Route: 048
     Dates: start: 20020101, end: 20040101
  2. LEVOTHYROXINE SODIUM [Concomitant]
     Indication: HYPOTHYROIDISM
     Route: 048
  3. AMLODIPINE BESYLATE [Concomitant]
     Indication: HYPERTENSION
     Route: 048
  4. MOCLOBEMIDE [Concomitant]
     Indication: DEPRESSION
     Route: 048
  5. METOPROLOL TARTRATE [Concomitant]
     Indication: HYPERTENSION
     Route: 048

REACTIONS (2)
  - LACUNAR INFARCTION [None]
  - PARESIS [None]
